FAERS Safety Report 6276895-6 (Version None)
Quarter: 2009Q3

REPORT INFORMATION
  Report Type: 
  Country: None (occurrence: None)
  Receive Date: 20090722
  Receipt Date: 20081124
  Transmission Date: 20100115
  Serious: No
  Sender: FDA-Public Use
  Company Number: US-BRISTOL-MYERS SQUIBB COMPANY-14361240

PATIENT
  Age: 58 Year
  Sex: Male
  Weight: 78 kg

DRUGS (3)
  1. COUMADIN [Suspect]
     Indication: CEREBROVASCULAR ACCIDENT
     Dosage: DOSE:1.5 TABS/DAY.
     Route: 048
     Dates: start: 20081001
  2. COUMADIN [Suspect]
     Indication: ATRIAL FIBRILLATION
     Dosage: DOSE:1.5 TABS/DAY.
     Route: 048
     Dates: start: 20081001
  3. TOPROL-XL [Concomitant]

REACTIONS (5)
  - DIZZINESS [None]
  - HEADACHE [None]
  - HYPERSENSITIVITY [None]
  - OROPHARYNGEAL PAIN [None]
  - PARAESTHESIA ORAL [None]
